FAERS Safety Report 18441251 (Version 1)
Quarter: 2020Q4

REPORT INFORMATION
  Report Type: Report from Study
  Country: US (occurrence: US)
  Receive Date: 20201029
  Receipt Date: 20201029
  Transmission Date: 20210114
  Serious: Yes (Other)
  Sender: FDA-Public Use
  Company Number: US-MYLANLABS-2020M1090999

PATIENT
  Age: 61 Year
  Sex: Female

DRUGS (4)
  1. METFORMIN [Suspect]
     Active Substance: METFORMIN HYDROCHLORIDE
     Indication: PLASMA CELL MYELOMA
     Dosage: 500 MILLIGRAM, BID
     Route: 048
  2. RITONAVIR. [Suspect]
     Active Substance: RITONAVIR
     Dosage: 800 MILLIGRAM, BID
     Route: 048
  3. RITONAVIR. [Suspect]
     Active Substance: RITONAVIR
     Indication: PLASMA CELL MYELOMA
     Dosage: 300 MILLIGRAM, BID DOSE GRADUALLY ESCALATED
     Route: 048
  4. METFORMIN [Suspect]
     Active Substance: METFORMIN HYDROCHLORIDE
     Dosage: 1000 MILLIGRAM, BID
     Route: 048

REACTIONS (7)
  - Urinary tract infection [Unknown]
  - Lactic acidosis [Recovered/Resolved]
  - Hypokalaemia [Unknown]
  - Diarrhoea [Recovered/Resolved]
  - Dehydration [Unknown]
  - Nausea [Unknown]
  - Off label use [Unknown]
